FAERS Safety Report 7348022-5 (Version None)
Quarter: 2011Q1

REPORT INFORMATION
  Report Type: 
  Country: None (occurrence: None)
  Receive Date: 20110302
  Receipt Date: 20110217
  Transmission Date: 20110831
  Serious: Yes (Other)
  Sender: FDA-Public Use
  Company Number: PHHO2004JP15812

PATIENT
  Age: 78 Year
  Sex: Male

DRUGS (3)
  1. VISUDYNE [Suspect]
     Indication: MACULAR DEGENERATION
     Dosage: 11.3 MG DAILY, IV
     Route: 042
     Dates: start: 20041002, end: 20041002
  2. SELBEK [Concomitant]
  3. TAKEPRON [Concomitant]

REACTIONS (6)
  - METAMORPHOPSIA [None]
  - RETINAL HAEMORRHAGE [None]
  - VISUAL ACUITY REDUCED [None]
  - DETACHMENT OF RETINAL PIGMENT EPITHELIUM [None]
  - DISEASE PROGRESSION [None]
  - RETINAL TEAR [None]
